FAERS Safety Report 12388102 (Version 2)
Quarter: 2016Q2

REPORT INFORMATION
  Report Type: Spontaneous
  Country: CH (occurrence: CH)
  Receive Date: 20160520
  Receipt Date: 20160527
  Transmission Date: 20160815
  Serious: Yes (Hospitalization, Other)
  Sender: FDA-Public Use
  Company Number: CH-ACCORD-040745

PATIENT
  Age: 22 Year
  Sex: Female

DRUGS (9)
  1. STANOZOLOL [Suspect]
     Active Substance: STANOZOLOL
     Indication: PRODUCT USED FOR UNKNOWN INDICATION
  2. ANASTROZOLE. [Suspect]
     Active Substance: ANASTROZOLE
     Indication: PRODUCT USED FOR UNKNOWN INDICATION
  3. LIOTHYRONINE [Suspect]
     Active Substance: LIOTHYRONINE
     Indication: PRODUCT USED FOR UNKNOWN INDICATION
  4. CLENBUTEROL [Suspect]
     Active Substance: CLENBUTEROL
     Indication: PRODUCT USED FOR UNKNOWN INDICATION
  5. MECASERMIN [Suspect]
     Active Substance: MECASERMIN
     Indication: PRODUCT USED FOR UNKNOWN INDICATION
  6. ALDACTONE [Suspect]
     Active Substance: SPIRONOLACTONE
     Indication: DIURETIC THERAPY
  7. TORASEMIDE [Suspect]
     Active Substance: TORSEMIDE
     Indication: DIURETIC THERAPY
  8. CHLORODEHYDROMETHYLTESTOSTERONE [Suspect]
     Active Substance: CHLORODEHYDROMETHYLTESTOSTERONE
     Indication: PRODUCT USED FOR UNKNOWN INDICATION
  9. LEVOTHYROXINE. [Suspect]
     Active Substance: LEVOTHYROXINE
     Indication: PRODUCT USED FOR UNKNOWN INDICATION

REACTIONS (9)
  - Rhinovirus infection [Recovered/Resolved]
  - Abdominal pain upper [None]
  - Myocarditis [None]
  - Enlarged clitoris [None]
  - Acute respiratory distress syndrome [Recovered/Resolved]
  - Pericardial effusion [None]
  - Pneumonia [Recovered/Resolved]
  - Hyperthyroidism [Unknown]
  - Intentional product misuse [Unknown]
